FAERS Safety Report 9240395 (Version 4)
Quarter: 2013Q4

REPORT INFORMATION
  Report Type: Spontaneous
  Country: US (occurrence: None)
  Receive Date: 20130417
  Receipt Date: 20131126
  Transmission Date: 20140711
  Serious: Yes (Hospitalization)
  Sender: FDA-Public Use
  Company Number: 2013US001451

PATIENT
  Age: 39 Year
  Sex: Female
  Weight: 50.2 kg

DRUGS (14)
  1. PONATINIB (AP24534) TABLET [Suspect]
     Indication: CHRONIC MYELOID LEUKAEMIA
     Route: 048
     Dates: start: 20110128, end: 20121229
  2. ARAVA (LEFLUNOMIDE) [Concomitant]
  3. ASPIRIN (ASPIRIN) [Concomitant]
  4. FOLIC ACID (FOLIC ACID) [Concomitant]
  5. GLIPIZIDE (GLIPIZIDE) [Concomitant]
  6. HYDROCODONE (HYDROCODONE) [Concomitant]
  7. IRON (IRON) [Concomitant]
  8. KETOPROFEN (KETOPROFEN) [Concomitant]
  9. LISINOPRIL (LISINOPRIL) [Concomitant]
  10. METFORMIN (METFORMIN) [Concomitant]
  11. PLAVIX (CLOPIDOGREL BISULFATE) [Concomitant]
  12. RITALIN (METHYLPHENIDATE HYDROCHLORIDE) [Concomitant]
  13. SIMVASTATIN (SIMVASTATIN) [Concomitant]
  14. TRAZODONE (TRAZODONE) [Concomitant]

REACTIONS (1)
  - Carotid artery stenosis [None]
